FAERS Safety Report 11391910 (Version 2)
Quarter: 2016Q1

REPORT INFORMATION
  Report Type: Spontaneous
  Country: DE (occurrence: DE)
  Receive Date: 20150818
  Receipt Date: 20160315
  Transmission Date: 20160525
  Serious: Yes (Life-Threatening)
  Sender: FDA-Public Use
  Company Number: DE-CELGENE-DEU-2015082504

PATIENT
  Age: 67 Year
  Sex: Male

DRUGS (1)
  1. VIDAZA [Suspect]
     Active Substance: AZACITIDINE
     Indication: MYELODYSPLASTIC SYNDROME
     Route: 050
     Dates: start: 20150216

REACTIONS (1)
  - Hyperbilirubinaemia [Not Recovered/Not Resolved]

NARRATIVE: CASE EVENT DATE: 20150724
